FAERS Safety Report 21838740 (Version 1)
Quarter: 2023Q1

REPORT INFORMATION
  Report Type: Report from Study
  Country: CA (occurrence: CA)
  Receive Date: 20230109
  Receipt Date: 20230109
  Transmission Date: 20230417
  Serious: Yes (Other)
  Sender: FDA-Public Use
  Company Number: CA-MYLANLABS-2022M1145970

PATIENT
  Sex: Male

DRUGS (1)
  1. OGIVRI [Suspect]
     Active Substance: TRASTUZUMAB-DKST
     Indication: Metastatic salivary gland cancer
     Dosage: 546 MILLIGRAM, Q3W
     Route: 042
     Dates: start: 20220825

REACTIONS (3)
  - Metastases to prostate [Unknown]
  - Prostatic specific antigen increased [Unknown]
  - Fatigue [Unknown]
